FAERS Safety Report 10772777 (Version 2)
Quarter: 2016Q1

REPORT INFORMATION
  Report Type: Other
  Country: US (occurrence: US)
  Receive Date: 20150207
  Receipt Date: 20160219
  Transmission Date: 20160525
  Serious: No
  Sender: FDA-Public Use
  Company Number: US-ACORDA-ACO_105869_2014

PATIENT

DRUGS (1)
  1. AMPYRA [Suspect]
     Active Substance: DALFAMPRIDINE
     Indication: PRODUCT USED FOR UNKNOWN INDICATION
     Dosage: 10 MG, 2 TABLETS ONCE DAILY
     Route: 048

REACTIONS (5)
  - Inappropriate schedule of drug administration [Unknown]
  - Drug ineffective [Unknown]
  - Gait disturbance [Recovered/Resolved]
  - Activities of daily living impaired [Unknown]
  - Fall [Unknown]
